FAERS Safety Report 15286102 (Version 1)
Quarter: 2018Q3

REPORT INFORMATION
  Report Type: Spontaneous
  Country: US (occurrence: US)
  Receive Date: 20180802
  Receipt Date: 20180802
  Transmission Date: 20181010
  Serious: Yes (Disabling)
  Sender: FDA-Public Use
  Company Number: None

PATIENT
  Age: 83 Year
  Sex: Male
  Weight: 94.5 kg

DRUGS (18)
  1. VALSARTAN. [Concomitant]
     Active Substance: VALSARTAN
  2. PROTONIX [Concomitant]
     Active Substance: PANTOPRAZOLE SODIUM
  3. FISH OIL [Concomitant]
     Active Substance: FISH OIL
  4. LASIX [Concomitant]
     Active Substance: FUROSEMIDE
  5. TYLENOL [Concomitant]
     Active Substance: ACETAMINOPHEN
  6. NITRO [Concomitant]
     Active Substance: NITROGLYCERIN
  7. NORVASC [Concomitant]
     Active Substance: AMLODIPINE BESYLATE
  8. MAGSO4 [Concomitant]
  9. VALSARTAN 320MG [Suspect]
     Active Substance: VALSARTAN
  10. ALLOPURINOL. [Concomitant]
     Active Substance: ALLOPURINOL
  11. ASPIRIN. [Concomitant]
     Active Substance: ASPIRIN
  12. PSYLIUM [Concomitant]
  13. PLAVIX [Concomitant]
     Active Substance: CLOPIDOGREL BISULFATE
  14. IMDUR [Concomitant]
     Active Substance: ISOSORBIDE MONONITRATE
  15. CARVEDILIO [Concomitant]
  16. LIPITOR [Concomitant]
     Active Substance: ATORVASTATIN CALCIUM
  17. SPIRONOLACTONE. [Concomitant]
     Active Substance: SPIRONOLACTONE
  18. COLACE [Concomitant]
     Active Substance: DOCUSATE SODIUM

REACTIONS (4)
  - Renal mass [None]
  - Blood calcium increased [None]
  - Renal cell carcinoma [None]
  - Metastases to lung [None]

NARRATIVE: CASE EVENT DATE: 20180402
